FAERS Safety Report 4618617-8 (Version None)
Quarter: 2005Q1

REPORT INFORMATION
  Report Type: 
  Country: None (occurrence: None)
  Receive Date: 20050323
  Receipt Date: 20050311
  Transmission Date: 20050727
  Serious: Yes (Hospitalization, Other)
  Sender: FDA-Public Use
  Company Number: 8009425

PATIENT
  Age: 8 Year
  Sex: Female
  Weight: 34 kg

DRUGS (2)
  1. KEPPRA [Suspect]
     Indication: CONVULSION
     Dosage: 500 MG 3/D PO
     Route: 048
     Dates: start: 20040901, end: 20050310
  2. DILANTIN [Concomitant]

REACTIONS (5)
  - CONVULSION [None]
  - HALLUCINATION, AUDITORY [None]
  - MENTAL DISORDER DUE TO A GENERAL MEDICAL CONDITION [None]
  - SLEEP DISORDER [None]
  - TIC [None]
